FAERS Safety Report 18855703 (Version 1)
Quarter: 2021Q1

REPORT INFORMATION
  Report Type: Report from Study
  Country: US (occurrence: US)
  Receive Date: 20210205
  Receipt Date: 20210205
  Transmission Date: 20210420
  Serious: Yes (Death, Hospitalization, Other)
  Sender: FDA-Public Use
  Company Number: US-B.I. PHARMACEUTICALS,INC./RIDGEFIELD-2020-BI-051059

PATIENT
  Age: 68 Year
  Sex: Female
  Weight: 51.8 kg

DRUGS (5)
  1. NIVOLUMAB [Suspect]
     Active Substance: NIVOLUMAB
     Indication: NON-SMALL CELL LUNG CANCER
     Dosage: 3MG/KG Q2WK
     Route: 042
     Dates: start: 20200827, end: 20200918
  2. ACETAMINOPHEN W/OXYCODONE [Concomitant]
     Active Substance: ACETAMINOPHEN\OXYCODONE HYDROCHLORIDE
     Indication: PRODUCT USED FOR UNKNOWN INDICATION
     Dosage: 1 TAB/Q8HRS
     Route: 048
  3. IPILIMUMAB [Suspect]
     Active Substance: IPILIMUMAB
     Indication: NON-SMALL CELL LUNG CANCER
     Dosage: 1MG/KG Q6WK
     Route: 042
     Dates: start: 20200827, end: 20200918
  4. CYCLOBENZAPRINE. [Concomitant]
     Active Substance: CYCLOBENZAPRINE
     Indication: PRODUCT USED FOR UNKNOWN INDICATION
     Dosage: 10 MG/BID
     Route: 048
  5. NINTEDANIB [Suspect]
     Active Substance: NINTEDANIB
     Indication: NON-SMALL CELL LUNG CANCER
     Route: 048
     Dates: start: 20200827, end: 20200924

REACTIONS (13)
  - Constipation [Recovered/Resolved]
  - Diarrhoea [Recovered/Resolved]
  - Dehydration [Not Recovered/Not Resolved]
  - Respiratory failure [Recovered/Resolved]
  - Vomiting [Not Recovered/Not Resolved]
  - Vomiting [Recovered/Resolved]
  - Bile duct stenosis [Recovered/Resolved]
  - Acute kidney injury [Recovered/Resolved]
  - Malignant neoplasm progression [Fatal]
  - Nausea [Not Recovered/Not Resolved]
  - Constipation [Recovered/Resolved]
  - Sepsis [Not Recovered/Not Resolved]
  - Pneumonia [Not Recovered/Not Resolved]

NARRATIVE: CASE EVENT DATE: 20200924
